FAERS Safety Report 20329996 (Version 3)
Quarter: 2022Q1

REPORT INFORMATION
  Report Type: Other
  Country: CA (occurrence: None)
  Receive Date: 20220113
  Receipt Date: 20220308
  Transmission Date: 20220424
  Serious: Yes (Hospitalization)
  Sender: FDA-Public Use
  Company Number: CA-ROCHE-2998434

PATIENT
  Sex: Female

DRUGS (7)
  1. OCREVUS [Suspect]
     Active Substance: OCRELIZUMAB
     Indication: Relapsing-remitting multiple sclerosis
     Dosage: MORE DOSAGE INFORMATION IS 300 MG AT DAY 0 AND 14, THEN 600 MG EVERY 6 MONTH
     Route: 042
     Dates: start: 20180530
  2. PREGABALIN [Concomitant]
     Active Substance: PREGABALIN
  3. METHYLPHENIDATE [Concomitant]
     Active Substance: METHYLPHENIDATE
  4. DULOXETINE [Concomitant]
     Active Substance: DULOXETINE
  5. SYNTHROID [Concomitant]
     Active Substance: LEVOTHYROXINE SODIUM
  6. BENYLIN [DIPHENHYDRAMINE HYDROCHLORIDE] [Concomitant]
  7. TYLENOL [Concomitant]
     Active Substance: ACETAMINOPHEN

REACTIONS (1)
  - COVID-19 [Recovered/Resolved]
